FAERS Safety Report 6309685-6 (Version None)
Quarter: 2009Q3

REPORT INFORMATION
  Report Type: 
  Country: None (occurrence: None)
  Receive Date: 20090814
  Receipt Date: 20090810
  Transmission Date: 20100115
  Serious: Yes (Hospitalization, Other)
  Sender: FDA-Public Use
  Company Number: PHHY2009SE33974

PATIENT
  Age: 2 Year
  Sex: Female

DRUGS (2)
  1. DICLOFENAC [Suspect]
     Indication: PAIN
     Dosage: 1MG/KG
  2. SALBUTAMOL [Suspect]
     Indication: LARYNGOMALACIA
     Route: 045

REACTIONS (1)
  - WHEEZING [None]
